FAERS Safety Report 8923862 (Version 2)
Quarter: 2013Q1

REPORT INFORMATION
  Report Type: Report from Study
  Country: FR (occurrence: FR)
  Receive Date: 20121126
  Receipt Date: 20130115
  Transmission Date: 20140127
  Serious: Yes (Hospitalization)
  Sender: FDA-Public Use
  Company Number: FR-TEVA-372162USA

PATIENT
  Age: 73 Year
  Sex: Female
  Weight: 60 kg

DRUGS (5)
  1. TREANDA [Suspect]
     Dosage: MONTHLY
     Route: 042
     Dates: start: 20120717, end: 20120918
  2. TREANDA [Suspect]
     Route: 042
     Dates: start: 20121003
  3. TREANDA [Suspect]
     Dosage: MONTHLY
     Route: 042
     Dates: start: 20121004
  4. RITUXIMAB [Suspect]
     Dosage: MONTHLY
     Route: 042
     Dates: start: 20120717, end: 20120918
  5. RITUXIMAB [Suspect]
     Dosage: REGIMEN #2
     Route: 042
     Dates: start: 20121003

REACTIONS (2)
  - Cardiac fibrillation [Recovered/Resolved with Sequelae]
  - Arrhythmia [Recovered/Resolved]
